FAERS Safety Report 23967967 (Version 1)
Quarter: 2024Q2

REPORT INFORMATION
  Report Type: Spontaneous
  Country: US (occurrence: US)
  Receive Date: 20240612
  Receipt Date: 20240612
  Transmission Date: 20240716
  Serious: No
  Sender: FDA-Public Use
  Company Number: US-RIGEL Pharmaceuticals, INC-2024FOS000462

PATIENT
  Sex: Male
  Weight: 97.959 kg

DRUGS (2)
  1. TAVALISSE [Suspect]
     Active Substance: FOSTAMATINIB
     Indication: Immune thrombocytopenia
     Dosage: 150 MG, BID (BIOLOGICS)
     Route: 048
     Dates: start: 202402
  2. TAVALISSE [Suspect]
     Active Substance: FOSTAMATINIB
     Indication: Monoclonal gammopathy
     Dosage: UNK (ANOTHER PHARMACY)
     Route: 065
     Dates: end: 2024

REACTIONS (1)
  - Blood test abnormal [Unknown]

NARRATIVE: CASE EVENT DATE: 20240101
